FAERS Safety Report 10176402 (Version 3)
Quarter: 2014Q2

REPORT INFORMATION
  Report Type: Spontaneous
  Country: JP (occurrence: JP)
  Receive Date: 20140516
  Receipt Date: 20140618
  Transmission Date: 20141212
  Serious: Yes (Hospitalization)
  Sender: FDA-Public Use
  Company Number: CHPA2014JP006495

PATIENT
  Age: 50 Year
  Sex: Female
  Weight: 56 kg

DRUGS (3)
  1. PURSENNIDE [Suspect]
     Indication: INVESTIGATION
     Dosage: 24 MG, QD
     Route: 048
     Dates: start: 20131019, end: 20131019
  2. NIFLEC [Concomitant]
     Dosage: 2 DF, UNK
     Route: 048
     Dates: start: 20131021, end: 20131021
  3. GASCON [Concomitant]
     Dosage: 40 MG, UNK
     Route: 048
     Dates: start: 20131020, end: 20131020

REACTIONS (1)
  - Abdominal hernia [Recovered/Resolved]
